FAERS Safety Report 20938584 (Version 1)
Quarter: 2022Q2

REPORT INFORMATION
  Report Type: Spontaneous
  Country: US (occurrence: US)
  Receive Date: 20220609
  Receipt Date: 20220609
  Transmission Date: 20220721
  Serious: Yes (Hospitalization, Other)
  Sender: FDA-Public Use
  Company Number: US-GLAXOSMITHKLINE-US2022AMR090258

PATIENT

DRUGS (1)
  1. ATOVAQUONE [Suspect]
     Active Substance: ATOVAQUONE
     Indication: Malaria
     Dosage: UNK

REACTIONS (4)
  - Cardiac disorder [Unknown]
  - Near death experience [Unknown]
  - Organ failure [Unknown]
  - Sedation [Unknown]
